FAERS Safety Report 8835791 (Version 1)
Quarter: 2012Q4

REPORT INFORMATION
  Report Type: 
  Country: US (occurrence: US)
  Receive Date: 20121011
  Receipt Date: 20121011
  Transmission Date: 20130627
  Serious: No
  Sender: FDA-Public Use
  Company Number: US-009507513-1210USA003780

PATIENT
  Age: 65 Year
  Sex: Female

DRUGS (1)
  1. ZETIA [Suspect]
     Indication: BLOOD CHOLESTEROL
     Dosage: 10 mg, qd
     Route: 048
     Dates: start: 20120708, end: 20120831

REACTIONS (1)
  - Alopecia [Not Recovered/Not Resolved]
